FAERS Safety Report 17105478 (Version 1)
Quarter: 2019Q4

REPORT INFORMATION
  Report Type: Report from Study
  Country: CH (occurrence: CH)
  Receive Date: 20191203
  Receipt Date: 20191203
  Transmission Date: 20200122
  Serious: Yes (Other)
  Sender: FDA-Public Use
  Company Number: CH-PFIZER INC-2019515007

PATIENT
  Sex: Female

DRUGS (3)
  1. METHOTREXATE SODIUM. [Suspect]
     Active Substance: METHOTREXATE SODIUM
     Indication: BREAST CANCER
     Dosage: UNK
  2. CYCLOPHOSPHAMIDE. [Suspect]
     Active Substance: CYCLOPHOSPHAMIDE
     Indication: BREAST CANCER
     Dosage: UNK
  3. 5-FLUOROURACIL [FLUOROURACIL SODIUM] [Suspect]
     Active Substance: FLUOROURACIL SODIUM
     Indication: BREAST CANCER
     Dosage: UNK

REACTIONS (1)
  - Acute myeloid leukaemia [Unknown]
